FAERS Safety Report 24266105 (Version 1)
Quarter: 2024Q3

REPORT INFORMATION
  Report Type: Spontaneous
  Country: US (occurrence: US)
  Receive Date: 20240830
  Receipt Date: 20240830
  Transmission Date: 20241017
  Serious: No
  Sender: ELI LILLY AND CO
  Company Number: US-ELI_LILLY_AND_COMPANY-US202408018795

PATIENT
  Age: 50 Year
  Sex: Female

DRUGS (4)
  1. CIALIS [Suspect]
     Active Substance: TADALAFIL
     Indication: Product used for unknown indication
     Dosage: UNK, UNKNOWN
     Route: 065
     Dates: start: 202408
  2. ELIQUIS [Suspect]
     Active Substance: APIXABAN
     Indication: Product used for unknown indication
     Dosage: UNK, UNKNOWN
     Route: 065
     Dates: start: 202408
  3. TYVASO [Suspect]
     Active Substance: TREPROSTINIL
     Indication: Pulmonary arterial hypertension
     Dosage: 10 BREATHS, QID
     Route: 055
     Dates: start: 202406
  4. TYVASO [Suspect]
     Active Substance: TREPROSTINIL
     Dosage: 9 BREATHS, QID
     Route: 055
     Dates: start: 202406

REACTIONS (3)
  - Contusion [Recovering/Resolving]
  - Weight increased [Unknown]
  - Cough [Recovering/Resolving]
